FAERS Safety Report 7590412-X (Version None)
Quarter: 2011Q3

REPORT INFORMATION
  Report Type: 
  Country: None (occurrence: None)
  Receive Date: 20110705
  Receipt Date: 20110630
  Transmission Date: 20111222
  Serious: Yes (Other)
  Sender: FDA-Public Use
  Company Number: SK-JNJFOC-20110611694

PATIENT
  Age: 39 Year
  Sex: Female

DRUGS (1)
  1. STELARA [Suspect]
     Indication: PSORIASIS
     Dosage: 2ND DOSE DEC-2010, 3RD DOSE MAR_2011
     Route: 058
     Dates: start: 20101101

REACTIONS (3)
  - WEIGHT INCREASED [None]
  - OEDEMA [None]
  - PSORIASIS [None]
